FAERS Safety Report 14011369 (Version 1)
Quarter: 2017Q3

REPORT INFORMATION
  Report Type: Spontaneous
  Country: US (occurrence: None)
  Receive Date: 20170926
  Receipt Date: 20170926
  Transmission Date: 20171128
  Serious: Yes (Hospitalization)
  Sender: FDA-Public Use
  Company Number: None

PATIENT
  Age: 74 Year
  Sex: Female
  Weight: 81.8 kg

DRUGS (3)
  1. CARBOPLATIN. [Suspect]
     Active Substance: CARBOPLATIN
     Dates: end: 20170907
  2. METFORMIN HYDROCHLORIDE. [Suspect]
     Active Substance: METFORMIN HYDROCHLORIDE
     Dates: end: 20170914
  3. TAXOL [Suspect]
     Active Substance: PACLITAXEL
     Dates: end: 20170907

REACTIONS (8)
  - Skin abrasion [None]
  - Rectal haemorrhage [None]
  - Blister [None]
  - Cellulitis [None]
  - Haemoglobin decreased [None]
  - Erythema [None]
  - Skin wound [None]
  - Contusion [None]

NARRATIVE: CASE EVENT DATE: 20170915
